FAERS Safety Report 9294218 (Version 1)
Quarter: 2013Q2

REPORT INFORMATION
  Report Type: Spontaneous
  Country: US (occurrence: None)
  Receive Date: 20130514
  Receipt Date: 20130514
  Transmission Date: 20140414
  Serious: Yes (Other)
  Sender: FDA-Public Use
  Company Number: JPI-P-031402

PATIENT
  Age: 34 Year
  Sex: Female
  Weight: 100.7 kg

DRUGS (20)
  1. XYREM (500 MILLIGRAM/ MILLILITERS, SOLUTION) (SODIUM OXYBATE) [Suspect]
     Indication: NARCOLEPSY
     Route: 048
     Dates: start: 201212
  2. NUVIGIL [Concomitant]
  3. METOPROLOL [Concomitant]
  4. HYDROCHLOROTHIAZIDE [Concomitant]
  5. KLOR-CON [Concomitant]
  6. SODIUM BICARBONATE [Concomitant]
  7. CLARITIN [Concomitant]
  8. ALLOPURINOL [Concomitant]
  9. TRAMADOL-APAP [Concomitant]
  10. PRAMIPEXOLE [Concomitant]
  11. MONTELUKAST [Concomitant]
  12. AMILORIDE [Concomitant]
  13. LISINOPRIL [Concomitant]
  14. CHLORPHENIRAMINE [Concomitant]
  15. NASONEX [Concomitant]
  16. PROAIR [Concomitant]
  17. SYMBICORT [Concomitant]
  18. BENADRYL [Concomitant]
  19. VENASTAT [Concomitant]
  20. PRENATAL VITAMINS [Concomitant]

REACTIONS (3)
  - Menstrual disorder [None]
  - Precancerous cells present [None]
  - Biopsy cervix abnormal [None]
